FAERS Safety Report 20665473 (Version 5)
Quarter: 2023Q4

REPORT INFORMATION
  Report Type: Other
  Country: RU (occurrence: None)
  Receive Date: 20220402
  Receipt Date: 20231006
  Transmission Date: 20240110
  Serious: Yes (Hospitalization)
  Sender: FDA-Public Use
  Company Number: RU-ROCHE-2953072

PATIENT
  Age: 72 Year
  Sex: Female
  Weight: 68 kg

DRUGS (18)
  1. ATEZOLIZUMAB [Suspect]
     Active Substance: ATEZOLIZUMAB
     Indication: Small cell lung cancer extensive stage
     Dosage: START DATE OF MOST RECENT DOSE OF STUDY DRUG PRIOR TO AE/SAE (1200 MG) :18/JUN/2021
     Route: 041
     Dates: start: 20210318
  2. CARBOPLATIN [Suspect]
     Active Substance: CARBOPLATIN
     Indication: Small cell lung cancer extensive stage
     Route: 065
     Dates: start: 20210318
  3. ETOPOSIDE [Suspect]
     Active Substance: ETOPOSIDE
     Indication: Small cell lung cancer extensive stage
     Route: 042
     Dates: start: 20210318
  4. RANITIDINE [Concomitant]
     Active Substance: RANITIDINE
     Dosage: NO
     Dates: start: 20210618, end: 20210620
  5. RANITIDINE [Concomitant]
     Active Substance: RANITIDINE
     Dates: start: 20210519, end: 20210521
  6. RANITIDINE [Concomitant]
     Active Substance: RANITIDINE
     Dates: start: 20210421, end: 20210423
  7. RANITIDINE [Concomitant]
     Active Substance: RANITIDINE
     Dates: start: 20210618, end: 20210620
  8. AMLODIPINUM [Concomitant]
     Dosage: YES
     Dates: start: 20060101
  9. LOZAP [Concomitant]
     Dates: start: 20060101
  10. ONDANSETRON [Concomitant]
     Active Substance: ONDANSETRON
     Dosage: NO
     Dates: start: 20210618, end: 20210620
  11. ONDANSETRON [Concomitant]
     Active Substance: ONDANSETRON
     Dates: start: 20210519, end: 20210521
  12. ONDANSETRON [Concomitant]
     Active Substance: ONDANSETRON
     Dates: start: 20210421, end: 20210423
  13. ONDANSETRON [Concomitant]
     Active Substance: ONDANSETRON
     Dates: start: 20210618, end: 20210620
  14. DEXAMETHASONE [Concomitant]
     Active Substance: DEXAMETHASONE
     Dosage: NO
     Dates: start: 20210618, end: 20210620
  15. DEXAMETHASONE [Concomitant]
     Active Substance: DEXAMETHASONE
     Dates: start: 20210519, end: 20210521
  16. DEXAMETHASONE [Concomitant]
     Active Substance: DEXAMETHASONE
     Dates: start: 20210421, end: 20210423
  17. DEXAMETHASONE [Concomitant]
     Active Substance: DEXAMETHASONE
     Dates: start: 20210618, end: 20210620
  18. RABEPRAZOLUM [Concomitant]
     Dates: start: 20190101

REACTIONS (1)
  - Toxic skin eruption [Recovered/Resolved]

NARRATIVE: CASE EVENT DATE: 20210710
